FAERS Safety Report 6962266-3 (Version None)
Quarter: 2010Q3

REPORT INFORMATION
  Report Type: 
  Country: None (occurrence: None)
  Receive Date: 20100830
  Receipt Date: 20100803
  Transmission Date: 20110219
  Serious: Yes (Other)
  Sender: FDA-Public Use
  Company Number: CL-191-2010

PATIENT
  Sex: Male
  Weight: 79.6 kg

DRUGS (3)
  1. METRONIDAZOLE [Suspect]
     Indication: EMPYEMA
     Dosage: 500 MG INTRAVENOUS
     Route: 042
     Dates: start: 20100705, end: 20100709
  2. PIPERACILLIN AND TAZOBACTAM [Suspect]
     Indication: EMPYEMA
     Dosage: 4.6 G INTRAVENOUS
     Route: 042
     Dates: start: 20100704, end: 20100712
  3. ERTAPENEM UNK [Suspect]
     Indication: SEPSIS
     Dosage: 500MG INTRAVENOUS
     Route: 042
     Dates: start: 20100714, end: 20100717

REACTIONS (3)
  - EOSINOPHILIA [None]
  - RASH [None]
  - RENAL IMPAIRMENT [None]
